FAERS Safety Report 18251961 (Version 2)
Quarter: 2020Q3

REPORT INFORMATION
  Report Type: Spontaneous
  Country: US (occurrence: US)
  Receive Date: 20200910
  Receipt Date: 20200928
  Transmission Date: 20201103
  Serious: Yes (Other)
  Sender: FDA-Public Use
  Company Number: US-DRREDDYS-USA/USA/20/0126692

PATIENT
  Age: 59 Year
  Sex: Male

DRUGS (6)
  1. PREDNISONE. [Suspect]
     Active Substance: PREDNISONE
     Indication: B-CELL LYMPHOMA
     Dosage: RECEIVED 6 CYCLES, SPACING 3 WEEKS BETWEEN TWO CYCLES.
  2. DOXORUBICIN HYDROCHLORIDE LIPOSOME INJECTION 20 MG/10 ML (2 MG/ML) AND [Suspect]
     Active Substance: DOXORUBICIN HYDROCHLORIDE
     Indication: B-CELL LYMPHOMA
     Dosage: RECEIVED 6 CYCLES, SPACING 3 WEEKS BETWEEN TWO CYCLES.
     Route: 065
  3. ETOPOSIDE. [Suspect]
     Active Substance: ETOPOSIDE
     Indication: B-CELL LYMPHOMA
     Dosage: RECEIVED 6 CYCLES, SPACING 3 WEEKS BETWEEN TWO CYCLES.
  4. CYCLOPHOSPHAMIDE. [Suspect]
     Active Substance: CYCLOPHOSPHAMIDE
     Indication: B-CELL LYMPHOMA
     Dosage: RECEIVED 6 CYCLES, SPACING 3 WEEKS BETWEEN TWO CYCLES.
  5. RITUXIMAB. [Suspect]
     Active Substance: RITUXIMAB
     Indication: B-CELL LYMPHOMA
     Dosage: RECEIVED 6 CYCLES, SPACING 3 WEEKS BETWEEN TWO CYCLES.
  6. VINCRISTINE [Suspect]
     Active Substance: VINCRISTINE
     Indication: B-CELL LYMPHOMA
     Dosage: RECEIVED 6 CYCLES, SPACING 3 WEEKS BETWEEN TWO CYCLES.

REACTIONS (2)
  - Nail ridging [Unknown]
  - B-cell lymphoma recurrent [Unknown]
